FAERS Safety Report 6923803-8 (Version None)
Quarter: 2010Q3

REPORT INFORMATION
  Report Type: 
  Country: None (occurrence: None)
  Receive Date: 20100813
  Receipt Date: 20100804
  Transmission Date: 20110219
  Serious: Yes (Hospitalization)
  Sender: FDA-Public Use
  Company Number: GXKR2010IT08760

PATIENT
  Age: 65 Year
  Sex: Male

DRUGS (5)
  1. LANSOPRAZOLE [Suspect]
     Dosage: 30 MG/DAY
     Route: 065
  2. PANTOPRAZOLE [Suspect]
     Dosage: 40 MG/DAY
     Route: 065
  3. METFORMIN HCL [Concomitant]
     Dosage: 500 MG, BID
     Route: 065
  4. CANDESARTAN [Concomitant]
     Dosage: 16 MG/DAY
     Route: 065
  5. RANITIDINE [Concomitant]
     Dosage: 300 MG, QD
     Route: 065

REACTIONS (16)
  - AREFLEXIA [None]
  - ATAXIA [None]
  - BALANCE DISORDER [None]
  - BUNDLE BRANCH BLOCK [None]
  - CONFUSIONAL STATE [None]
  - DECREASED APPETITE [None]
  - DELIRIUM [None]
  - DEPRESSED LEVEL OF CONSCIOUSNESS [None]
  - DIZZINESS [None]
  - DYSSTASIA [None]
  - FALL [None]
  - HALLUCINATION [None]
  - HYPOMAGNESAEMIA [None]
  - MYOCLONUS [None]
  - NAUSEA [None]
  - URINARY RETENTION [None]
